FAERS Safety Report 23436185 (Version 3)
Quarter: 2024Q1

REPORT INFORMATION
  Report Type: Spontaneous
  Country: US (occurrence: US)
  Receive Date: 20240124
  Receipt Date: 20240125
  Transmission Date: 20240410
  Serious: Yes (Hospitalization)
  Sender: FDA-Public Use
  Company Number: US-SA-SAC20240101001067

PATIENT
  Age: 9 Year
  Sex: Female
  Weight: 31.8 kg

DRUGS (17)
  1. DUPIXENT [Suspect]
     Active Substance: DUPILUMAB
     Indication: Asthma
     Dosage: 300 MG, 1X
     Dates: start: 202310, end: 202310
  2. DUPIXENT [Suspect]
     Active Substance: DUPILUMAB
     Dosage: 300 MG, QM
     Route: 058
  3. DUPIXENT [Suspect]
     Active Substance: DUPILUMAB
     Dosage: 200 MG, QOW
     Route: 058
     Dates: start: 202311
  4. SODIUM CHLORIDE [Concomitant]
     Active Substance: SODIUM CHLORIDE
     Dosage: 656 ML
     Route: 042
     Dates: start: 20231210
  5. MAGNESIUM SULFATE [Concomitant]
     Active Substance: MAGNESIUM SULFATE\MAGNESIUM SULFATE HEPTAHYDRATE
     Dosage: 1.64 G INTRAVENOUS
     Route: 042
     Dates: start: 20231210
  6. PREDNISONE [Concomitant]
     Active Substance: PREDNISONE
     Dosage: UNK UNK, BID
  7. IBUPROFEN [Concomitant]
     Active Substance: IBUPROFEN
     Dosage: 340 MG, Q6H; TAKE 17 ML (340 MG) BY MOUTH EVERY 6 HOURS AS NEEDED
     Route: 048
     Dates: start: 20231211
  8. ZYRTEC [Concomitant]
     Active Substance: CETIRIZINE HYDROCHLORIDE
     Indication: Hypersensitivity
     Dosage: 1 DF, PRN
     Route: 048
     Dates: start: 20231013
  9. ORAPRED [Concomitant]
     Active Substance: PREDNISOLONE SODIUM PHOSPHATE
     Dosage: 11 ML, BID
     Route: 048
     Dates: start: 20231212, end: 20231217
  10. EPIPEN [Concomitant]
     Active Substance: EPINEPHRINE
     Indication: Hypersensitivity
     Dosage: 0.3 MG
     Route: 030
     Dates: start: 20231101
  11. ADVAIR HFA [Concomitant]
     Active Substance: FLUTICASONE PROPIONATE\SALMETEROL XINAFOATE
     Dosage: 2 DF, BID
     Dates: start: 20231101, end: 20240112
  12. FLONASE [Concomitant]
     Active Substance: FLUTICASONE PROPIONATE
     Dosage: 1 DF; USE 1 SPRAY IN EACH NOSTRIL DAILY
     Dates: start: 20231013
  13. MIRALAX [Concomitant]
     Active Substance: POLYETHYLENE GLYCOL 3350
     Dosage: 17 G; TAKE 17 G BY MOUTH DAILY MIX IN 4 TO 8 OUNCES OF WATER OR JUICE
     Route: 048
     Dates: start: 20231113
  14. SPIRIVA RESPIMAT [Concomitant]
     Active Substance: TIOTROPIUM BROMIDE
     Dosage: 2 DF, QD; INHALE 2 PUFFS DAILY
     Dates: start: 20231101
  15. TYLENOL [Concomitant]
     Active Substance: ACETAMINOPHEN
     Dosage: 512 MG, Q6H; TAKE 16 ML (512 MG) BY MOUTH EVERY 6 HOURS AS NEEDED MAXIMUM OF 5 DOSES PER DAY.512 MG,
     Route: 048
     Dates: start: 20231211
  16. ALBUTEROL SULFATE [Concomitant]
     Active Substance: ALBUTEROL SULFATE
     Indication: Cough
     Dosage: 90 UG, Q4H; INHALE 4 PUFFS EVERY 4 HOURS AS NEEDED FOR WHEEZING OR COUGH FOR UP TO 90 DAYS ; USE
     Dates: start: 20231207, end: 20240112
  17. ALBUTEROL SULFATE [Concomitant]
     Active Substance: ALBUTEROL SULFATE
     Indication: Wheezing

REACTIONS (10)
  - Asthma [Unknown]
  - Cough [Unknown]
  - Dyspnoea [Not Recovered/Not Resolved]
  - Chest discomfort [Unknown]
  - Wheezing [Unknown]
  - Ear pain [Unknown]
  - Weight increased [Unknown]
  - Bronchial wall thickening [Unknown]
  - Pruritus [Unknown]
  - Incorrect dose administered [Unknown]

NARRATIVE: CASE EVENT DATE: 20230101
